FAERS Safety Report 8223213-X (Version None)
Quarter: 2012Q1

REPORT INFORMATION
  Report Type: 
  Country: None (occurrence: None)
  Receive Date: 20120321
  Receipt Date: 20120309
  Transmission Date: 20120608
  Serious: Yes (Hospitalization, Other)
  Sender: FDA-Public Use
  Company Number: US-ROCHE-791916

PATIENT
  Sex: Male
  Weight: 77.18 kg

DRUGS (5)
  1. ACCUTANE [Suspect]
     Route: 048
     Dates: start: 20041113, end: 20041213
  2. MINOCIN [Concomitant]
     Indication: ACNE
  3. ACCUTANE [Suspect]
     Route: 048
     Dates: start: 20030901, end: 20031001
  4. ACCUTANE [Suspect]
     Route: 048
     Dates: start: 20031011, end: 20040111
  5. ACCUTANE [Suspect]
     Indication: ACNE
     Route: 048
     Dates: start: 20020101, end: 20030101

REACTIONS (6)
  - CROHN'S DISEASE [None]
  - INFLAMMATORY BOWEL DISEASE [None]
  - ANAL FISTULA [None]
  - SUICIDAL IDEATION [None]
  - EMOTIONAL DISTRESS [None]
  - LIP DRY [None]
